FAERS Safety Report 4983161-5 (Version None)
Quarter: 2006Q2

REPORT INFORMATION
  Report Type: 
  Country: None (occurrence: None)
  Receive Date: 20060419
  Receipt Date: 20060327
  Transmission Date: 20061013
  Serious: Yes (Hospitalization)
  Sender: FDA-Public Use
  Company Number: IN200603006553

PATIENT
  Age: 31 Year
  Sex: Male

DRUGS (2)
  1. HUMAN INSULIN (RDNA ORIGIN) REGULAR (HUMAN INSULIN (RDNA ORIGIN) REGUL [Suspect]
     Indication: DIABETES MELLITUS INSULIN-DEPENDENT
     Dosage: SEE IMAGE
     Dates: start: 20060327
  2. INSULIN GLARGINE (INSULIN GLARGINE) [Suspect]
     Indication: DIABETES MELLITUS INSULIN-DEPENDENT
     Dosage: 36 IU, SUBCUTANEOUS
     Route: 058
     Dates: start: 20060125

REACTIONS (11)
  - BLOOD GLUCOSE INCREASED [None]
  - BLOOD PRESSURE INCREASED [None]
  - DEHYDRATION [None]
  - DEVICE MALFUNCTION [None]
  - DIABETIC KETOACIDOSIS [None]
  - DYSPNOEA [None]
  - HEART RATE INCREASED [None]
  - HYPOGLYCAEMIA [None]
  - PCO2 INCREASED [None]
  - PERIPHERAL COLDNESS [None]
  - PO2 INCREASED [None]
